FAERS Safety Report 6609489-0 (Version None)
Quarter: 2010Q1

REPORT INFORMATION
  Report Type: 
  Country: None (occurrence: None)
  Receive Date: 20100224
  Receipt Date: 20100209
  Transmission Date: 20100710
  Serious: No
  Sender: FDA-Public Use
  Company Number: FR-1180553

PATIENT
  Age: 68 Year
  Sex: Female

DRUGS (2)
  1. AZOPT [Suspect]
     Indication: GLAUCOMA
     Dosage: 2 GTTS OPHTHALMIC
     Route: 047
     Dates: end: 20091201
  2. LUMIGAN [Concomitant]

REACTIONS (6)
  - ABDOMINAL DISCOMFORT [None]
  - DEPRESSED LEVEL OF CONSCIOUSNESS [None]
  - FEELING COLD [None]
  - NAUSEA [None]
  - VERTIGO [None]
  - VOMITING [None]
